FAERS Safety Report 15996275 (Version 7)
Quarter: 2020Q1

REPORT INFORMATION
  Report Type: Report from Study
  Country: US (occurrence: US)
  Receive Date: 20190222
  Receipt Date: 20200331
  Transmission Date: 20200409
  Serious: Yes (Hospitalization)
  Sender: FDA-Public Use
  Company Number: US-ACTELION-A-NJ2019-186453

PATIENT
  Age: 35 Year
  Sex: Female
  Weight: 36.28 kg

DRUGS (4)
  1. MIDODRINE [Concomitant]
     Active Substance: MIDODRINE
  2. ADEMPAS [Concomitant]
     Active Substance: RIOCIGUAT
  3. OPSUMIT [Suspect]
     Active Substance: MACITENTAN
     Indication: PULMONARY HYPERTENSION
     Dosage: 10 MG, QD
     Route: 048
  4. ELIQUIS [Concomitant]
     Active Substance: APIXABAN

REACTIONS (6)
  - Hypotension [Unknown]
  - Dizziness [Unknown]
  - Hospitalisation [Unknown]
  - Hypertonic bladder [Unknown]
  - Headache [Unknown]
  - Wound [Unknown]

NARRATIVE: CASE EVENT DATE: 20190220
